FAERS Safety Report 12661150 (Version 2)
Quarter: 2016Q3

REPORT INFORMATION
  Report Type: Spontaneous
  Country: US (occurrence: US)
  Receive Date: 20160817
  Receipt Date: 20160901
  Transmission Date: 20161109
  Serious: No
  Sender: FDA-Public Use
  Company Number: US-RELYPSA-RLY2016000657

PATIENT
  Sex: Male

DRUGS (10)
  1. VELTASSA [Suspect]
     Active Substance: PATIROMER
     Indication: HYPERKALAEMIA
     Dosage: 8.4 G, QD
     Dates: start: 20160423
  2. LASIX [Concomitant]
     Active Substance: FUROSEMIDE
  3. FOSRENOL [Concomitant]
     Active Substance: LANTHANUM CARBONATE
  4. CALCITRIOL. [Concomitant]
     Active Substance: CALCITRIOL
  5. FOLBIC [Concomitant]
     Active Substance: CYANOCOBALAMIN\FOLIC ACID\PYRIDOXINE
  6. TOPROL XL [Concomitant]
     Active Substance: METOPROLOL SUCCINATE
  7. GLYBURIDE. [Concomitant]
     Active Substance: GLYBURIDE
  8. DOXYCYCLINE HYCLATE. [Concomitant]
     Active Substance: DOXYCYCLINE HYCLATE
  9. MICARDIS [Concomitant]
     Active Substance: TELMISARTAN
  10. CRESTOR [Concomitant]
     Active Substance: ROSUVASTATIN CALCIUM

REACTIONS (1)
  - Headache [Unknown]
